FAERS Safety Report 22119631 (Version 1)
Quarter: 2023Q1

REPORT INFORMATION
  Report Type: Spontaneous
  Country: US (occurrence: None)
  Receive Date: 20230321
  Receipt Date: 20230321
  Transmission Date: 20230418
  Serious: No
  Sender: FDA-Public Use
  Company Number: US-ROCHE-3034023

PATIENT
  Sex: Male

DRUGS (1)
  1. ERIVEDGE [Suspect]
     Active Substance: VISMODEGIB
     Indication: Basal cell carcinoma
     Dosage: FROM 02/FEB/2022 TO CURRENT?ERIVEDGE 150 MG FOR FOR 16 PRECEDING DAYS
     Route: 048
     Dates: start: 20220202

REACTIONS (1)
  - Muscle spasms [Recovered/Resolved]
